FAERS Safety Report 5926647-9 (Version None)
Quarter: 2008Q4

REPORT INFORMATION
  Report Type: 
  Country: None (occurrence: None)
  Receive Date: 20081022
  Receipt Date: 20081020
  Transmission Date: 20090506
  Serious: Yes (Hospitalization, Other)
  Sender: FDA-Public Use
  Company Number: IT-BRISTOL-MYERS SQUIBB COMPANY-14278402

PATIENT
  Age: 63 Year
  Sex: Male
  Weight: 69 kg

DRUGS (15)
  1. CETUXIMAB [Suspect]
     Indication: HEAD AND NECK CANCER
     Dosage: STARTED ON 09JUN08 400 MG/M2 LOADING DOSE. ON AN UNK DATE CONTINUED CETUXIMAB 250 MG/M2 WEEKLY
     Route: 042
     Dates: start: 20080714, end: 20080714
  2. ALIMTA [Suspect]
     Indication: HEAD AND NECK CANCER
     Dosage: THERAPY STARTED ON 17JUN08 FORM = VIAL
     Route: 042
     Dates: start: 20080707, end: 20080707
  3. RADIATION THERAPY [Suspect]
     Indication: HEAD AND NECK CANCER
     Dosage: 70 DOSAGEFORM = 70 GY. 2GY PER DAY(TOTAL DOSE OF 70GY WAS ACHIEVED). STARTED ON 17JUN08
     Dates: start: 20080718, end: 20080718
  4. FOLIC ACID [Concomitant]
     Dates: start: 20080605
  5. VITAMIN B-12 [Concomitant]
     Dates: start: 20080605
  6. DEXAMETHASONE [Concomitant]
     Dates: start: 20080616, end: 20080716
  7. NALOXONE [Concomitant]
     Dates: start: 20080719
  8. FLUMAZENIL [Concomitant]
     Dates: start: 20080719
  9. PIPERACILLIN SODIUM [Concomitant]
     Dates: start: 20080719
  10. TAZOBACTAM SODIUM [Concomitant]
     Dates: start: 20080719
  11. OMEPRAZOLE [Concomitant]
     Dates: start: 20080719
  12. CERNEVIT-12 [Concomitant]
     Dates: start: 20080719
  13. ACETAMINOPHEN [Concomitant]
     Dates: start: 20080719
  14. FENTANYL CITRATE [Concomitant]
     Dates: start: 20080719
  15. LOW MOLECULAR WEIGHT HEPARINS [Concomitant]
     Dates: start: 20080719

REACTIONS (3)
  - ALANINE AMINOTRANSFERASE INCREASED [None]
  - HEPATIC FAILURE [None]
  - RESPIRATORY DISTRESS [None]
